FAERS Safety Report 16372250 (Version 2)
Quarter: 2019Q2

REPORT INFORMATION
  Report Type: Spontaneous
  Country: BE (occurrence: BE)
  Receive Date: 20190530
  Receipt Date: 20190607
  Transmission Date: 20190711
  Serious: Yes (Other)
  Sender: FDA-Public Use
  Company Number: BE-ABBVIE-19S-013-2802012-00

PATIENT

DRUGS (2)
  1. SEVOFRANE [Suspect]
     Active Substance: SEVOFLURANE
     Route: 055
  2. SEVOFRANE [Suspect]
     Active Substance: SEVOFLURANE
     Indication: ANAESTHESIA
     Route: 055

REACTIONS (3)
  - Underdose [Unknown]
  - Unwanted awareness during anaesthesia [Unknown]
  - Device leakage [Unknown]
